FAERS Safety Report 21468725 (Version 1)
Quarter: 2022Q4

REPORT INFORMATION
  Report Type: Other
  Country: None (occurrence: US)
  Receive Date: 20221018
  Receipt Date: 20221018
  Transmission Date: 20230113
  Serious: Yes (Hospitalization, Other)
  Sender: FDA-Public Use
  Company Number: US-OrBion Pharmaceuticals Private Limited-2133922

PATIENT
  Age: 15 Year
  Sex: Female

DRUGS (1)
  1. VENLAFAXINE HYDROCHLORIDE [Suspect]
     Active Substance: VENLAFAXINE HYDROCHLORIDE
     Indication: Mental disorder
     Route: 065
     Dates: start: 202102

REACTIONS (2)
  - Galactorrhoea [Recovered/Resolved]
  - Hyperprolactinaemia [Recovered/Resolved]
